FAERS Safety Report 25140910 (Version 3)
Quarter: 2025Q2

REPORT INFORMATION
  Report Type: Spontaneous
  Country: US (occurrence: US)
  Receive Date: 20250331
  Receipt Date: 20250526
  Transmission Date: 20250717
  Serious: Yes (Death, Hospitalization, Other)
  Sender: NOVARTIS
  Company Number: US-002147023-NVSC2025US053040

PATIENT
  Age: 56 Year
  Sex: Male

DRUGS (7)
  1. PLUVICTO [Suspect]
     Active Substance: LUTETIUM LU-177 VIPIVOTIDE TETRAXETAN
     Indication: Prostate cancer
     Route: 065
     Dates: start: 20240905
  2. PLUVICTO [Suspect]
     Active Substance: LUTETIUM LU-177 VIPIVOTIDE TETRAXETAN
     Route: 042
     Dates: start: 20241021
  3. PLUVICTO [Suspect]
     Active Substance: LUTETIUM LU-177 VIPIVOTIDE TETRAXETAN
     Route: 065
     Dates: start: 20241022
  4. MANNITOL [Concomitant]
     Active Substance: MANNITOL
     Indication: Product used for unknown indication
     Route: 065
  5. SODIUM CHLORIDE [Concomitant]
     Active Substance: SODIUM CHLORIDE
     Indication: Product used for unknown indication
     Route: 065
  6. DEXAMETHASONE [Concomitant]
     Active Substance: DEXAMETHASONE
     Indication: Product used for unknown indication
     Route: 065
  7. SULFAMETHOXAZOLE\TRIMETHOPRIM [Concomitant]
     Active Substance: SULFAMETHOXAZOLE\TRIMETHOPRIM
     Indication: Product used for unknown indication
     Dosage: 1 DOSAGE FORM, BID (FOR 7 DAYS)
     Route: 065

REACTIONS (31)
  - Disseminated intravascular coagulation [Fatal]
  - Subdural haematoma [Fatal]
  - Thrombocytopenia [Fatal]
  - Metastases to liver [Fatal]
  - Unresponsive to stimuli [Fatal]
  - Coma [Fatal]
  - Mallory-Weiss syndrome [Unknown]
  - Facial paralysis [Unknown]
  - Cerebral haemorrhage [Unknown]
  - Haematemesis [Unknown]
  - Loss of consciousness [Unknown]
  - Urinary retention [Unknown]
  - Malaise [Unknown]
  - Early satiety [Unknown]
  - Weight decreased [Unknown]
  - Blood urine present [Unknown]
  - Headache [Not Recovered/Not Resolved]
  - Nausea [Not Recovered/Not Resolved]
  - Abdominal discomfort [Unknown]
  - Vomiting [Not Recovered/Not Resolved]
  - Peripheral swelling [Unknown]
  - Contusion [Unknown]
  - Lethargy [Not Recovered/Not Resolved]
  - Constipation [Unknown]
  - Yawning [Unknown]
  - Eye colour change [Unknown]
  - Dysarthria [Recovered/Resolved]
  - Swelling [Not Recovered/Not Resolved]
  - Muscular weakness [Not Recovered/Not Resolved]
  - Dysarthria [Unknown]
  - Drug ineffective [Unknown]

NARRATIVE: CASE EVENT DATE: 20241017
